FAERS Safety Report 11833692 (Version 1)
Quarter: 2015Q4

REPORT INFORMATION
  Report Type: Spontaneous
  Country: FR (occurrence: FR)
  Receive Date: 20151214
  Receipt Date: 20151214
  Transmission Date: 20160305
  Serious: Yes (Congenital Anomaly)
  Sender: FDA-Public Use
  Company Number: FR-FERRINGPH-2015FE04676

PATIENT

DRUGS (3)
  1. MENOPUR [Suspect]
     Active Substance: FOLLICLE STIMULATING HORMONE BETA POLYPEPTIDE\LUTROPIN ALFA
     Indication: PRODUCT USED FOR UNKNOWN INDICATION
     Route: 064
  2. DECAPEPTYL [Suspect]
     Active Substance: TRIPTORELIN ACETATE
     Indication: PRODUCT USED FOR UNKNOWN INDICATION
     Route: 064
  3. CLOMID [Suspect]
     Active Substance: CLOMIPHENE CITRATE
     Indication: PRODUCT USED FOR UNKNOWN INDICATION
     Route: 064

REACTIONS (3)
  - Maternal drugs affecting foetus [None]
  - Encephalocele [Recovered/Resolved]
  - Encephalocele repair [Recovered/Resolved]

NARRATIVE: CASE EVENT DATE: 20130919
